FAERS Safety Report 6931346-0 (Version None)
Quarter: 2010Q3

REPORT INFORMATION
  Report Type: 
  Country: None (occurrence: None)
  Receive Date: 20100818
  Receipt Date: 20100804
  Transmission Date: 20110219
  Serious: Yes (Other)
  Sender: FDA-Public Use
  Company Number: US-ELI_LILLY_AND_COMPANY-US201008002405

PATIENT
  Sex: Female

DRUGS (7)
  1. FORTEO [Suspect]
     Indication: OSTEOPOROSIS
     Dosage: 20 UG, DAILY (1/D)
     Dates: start: 20100416, end: 20100430
  2. FORTEO [Suspect]
     Dosage: 20 UG, DAILY (1/D)
     Dates: start: 20100503, end: 20100723
  3. FORTEO [Suspect]
     Dosage: 20 UG, DAILY (1/D)
     Dates: start: 20100726
  4. PERCOGESIC [Concomitant]
  5. CALTRATE [Concomitant]
  6. FIORICET [Concomitant]
     Indication: PAIN
  7. VITAMIN TAB [Concomitant]

REACTIONS (8)
  - CALCIUM DEFICIENCY [None]
  - FALL [None]
  - GAIT DISTURBANCE [None]
  - MUSCLE SPASMS [None]
  - PAIN IN EXTREMITY [None]
  - PELVIC FRACTURE [None]
  - SPINAL FRACTURE [None]
  - VITAMIN D DEFICIENCY [None]
